FAERS Safety Report 26206808 (Version 1)
Quarter: 2025Q4

REPORT INFORMATION
  Report Type: Spontaneous
  Country: US (occurrence: US)
  Receive Date: 20251229
  Receipt Date: 20251229
  Transmission Date: 20260118
  Serious: Yes (Other)
  Sender: ALEXION PHARMACEUTICALS
  Company Number: US-AstraZeneca-CH-01020275A

PATIENT

DRUGS (1)
  1. NEXIUM 24HR [Suspect]
     Active Substance: ESOMEPRAZOLE MAGNESIUM
     Route: 065

REACTIONS (6)
  - Digestive enzyme abnormal [Unknown]
  - Extra dose administered [Unknown]
  - Precancerous condition [Unknown]
  - Cardiac failure [Unknown]
  - Fatigue [Unknown]
  - Illness [Unknown]
